FAERS Safety Report 5153332-6 (Version None)
Quarter: 2006Q4

REPORT INFORMATION
  Report Type: 
  Country: None (occurrence: None)
  Receive Date: 20061114
  Receipt Date: 20061025
  Transmission Date: 20070319
  Serious: Yes (Other)
  Sender: FDA-Public Use
  Company Number: 2006SP005012

PATIENT
  Age: 52 Year
  Sex: Female

DRUGS (1)
  1. DIPROSPAN (BETAMETHASONE SODIUM PHOSPHATE / DIPROPIONATE ) (BETAMETHAS [Suspect]
     Indication: ARTHRITIS REACTIVE
     Dosage: 1 ML; IM
     Route: 030
     Dates: start: 20060515, end: 20060614

REACTIONS (1)
  - HEPATIC ENZYME INCREASED [None]
